FAERS Safety Report 9851274 (Version 1)
Quarter: 2014Q1

REPORT INFORMATION
  Report Type: Report from Study
  Country: FI (occurrence: FI)
  Receive Date: 20140128
  Receipt Date: 20140128
  Transmission Date: 20141002
  Serious: Yes (Other)
  Sender: FDA-Public Use
  Company Number: FI-ROCHE-1340620

PATIENT
  Sex: 0

DRUGS (5)
  1. ALTEPLASE [Suspect]
     Indication: ISCHAEMIC STROKE
     Route: 042
  2. MEPERIDINE [Suspect]
     Indication: SEDATION
     Dosage: 50 TO 100 MG WITHIN 2 HOURS (LOADING DOSE)
     Route: 042
  3. MEPERIDINE [Suspect]
     Dosage: 25 MG EVERY 1 OR 2 HOURS
     Route: 042
  4. DEXMEDETOMIDINE [Concomitant]
     Indication: SEDATION
     Dosage: 0.2-0.7 MCG/KG
     Route: 042
  5. BUSPIRONE [Concomitant]
     Indication: SEDATION
     Dosage: 20MG/8HOURS VIA NASOGASTRIC TUBE
     Route: 065

REACTIONS (1)
  - Hypercapnia [Recovered/Resolved]
